FAERS Safety Report 19744908 (Version 2)
Quarter: 2021Q3

REPORT INFORMATION
  Report Type: Report from Study
  Country: CN (occurrence: CN)
  Receive Date: 20210825
  Receipt Date: 20210927
  Transmission Date: 20211014
  Serious: Yes (Hospitalization)
  Sender: FDA-Public Use
  Company Number: CN-PFIZER INC-202101053433

PATIENT
  Age: 72 Year
  Sex: Male
  Weight: 69.5 kg

DRUGS (11)
  1. PEGYLATED RECOMBINANT HUMAN GRANULOCYTE COLONY STIMULATING FACTOR [Concomitant]
     Indication: PROPHYLAXIS
     Dosage: 3 MG, SINGLE DOSE, HYPODERMIC INJECTION
     Dates: start: 202107, end: 202107
  2. PALONOSETRON HYDROCHLORIDE. [Concomitant]
     Active Substance: PALONOSETRON HYDROCHLORIDE
     Indication: VOMITING
     Dosage: 0.25 MG, SINGLE DOSE, MICROPUMP INTRAVENOUS BOLUS INJECTION
     Route: 040
     Dates: start: 20210720, end: 20210720
  3. LOSARTAN POTASSIUM. [Concomitant]
     Active Substance: LOSARTAN POTASSIUM
     Dosage: 0.1 G, 1X/DAY
     Route: 048
     Dates: start: 201905
  4. DEXAMETHASONE. [Concomitant]
     Active Substance: DEXAMETHASONE
     Indication: ALLERGY PROPHYLAXIS
     Dosage: 10 MG, SINGLE DOSE, MICROPUMP INTRAVENOUS BOLUS INJECTION
     Route: 040
     Dates: start: 20210720, end: 20210720
  5. OMEPRAZOLE [OMEPRAZOLE SODIUM] [Concomitant]
     Active Substance: OMEPRAZOLE SODIUM
     Indication: PROPHYLAXIS
     Dosage: 40 MG, SINGLE DOSE, MICROPUMP INTRAVENOUS BOLUS INJECTION
     Route: 040
     Dates: start: 20210720, end: 20210720
  6. BLINDED THERAPY [Suspect]
     Active Substance: INVESTIGATIONAL PRODUCT
     Indication: SQUAMOUS CELL CARCINOMA OF LUNG
     Dosage: UNK, Q3W
     Route: 041
     Dates: start: 20210719, end: 20210719
  7. ONDANSETRON [Concomitant]
     Active Substance: ONDANSETRON
     Indication: PROPHYLAXIS OF NAUSEA AND VOMITING
     Dosage: 1 DF, 1X/DAY
     Route: 048
     Dates: start: 202107, end: 202108
  8. FOSAPREPITANT DIMEGLUMINE. [Concomitant]
     Active Substance: FOSAPREPITANT DIMEGLUMINE
     Indication: VOMITING
     Dosage: 0.15 G, SINGLE DOSE
     Route: 042
     Dates: start: 20210720, end: 20210720
  9. BO BEI [Suspect]
     Active Substance: CARBOPLATIN
     Indication: SQUAMOUS CELL CARCINOMA OF LUNG
     Dosage: 500 MG, ONCE EVERY THREE WEEK
     Route: 041
     Dates: start: 20210720, end: 20210720
  10. ANZATAX (PACLITAXEL) [Suspect]
     Active Substance: PACLITAXEL
     Indication: SQUAMOUS CELL CARCINOMA OF LUNG
     Dosage: 312 MG, ONCE EVERY THREE WEEKS
     Route: 041
     Dates: start: 20210720, end: 20210720
  11. LEUCOGEN [Concomitant]
     Active Substance: LEUCOGEN
     Indication: PROPHYLAXIS
     Dosage: 1 TABLET, 1X/DAY
     Route: 048
     Dates: start: 202107, end: 202108

REACTIONS (1)
  - Oral mucosa erosion [Recovering/Resolving]

NARRATIVE: CASE EVENT DATE: 20210730
